FAERS Safety Report 7456005-X (Version None)
Quarter: 2011Q2

REPORT INFORMATION
  Report Type: 
  Country: None (occurrence: None)
  Receive Date: 20110503
  Receipt Date: 20110426
  Transmission Date: 20111010
  Serious: Yes (Other)
  Sender: FDA-Public Use
  Company Number: US-MERCK-1104USA03722

PATIENT
  Sex: Female

DRUGS (1)
  1. FOSAMAX [Suspect]
     Indication: OSTEOPOROSIS
     Route: 048
     Dates: start: 20030101, end: 20080801

REACTIONS (5)
  - ANKLE FRACTURE [None]
  - PAIN IN EXTREMITY [None]
  - FOOT FRACTURE [None]
  - GAIT DISTURBANCE [None]
  - FEMUR FRACTURE [None]
